FAERS Safety Report 5962257-5 (Version None)
Quarter: 2008Q4

REPORT INFORMATION
  Report Type: 
  Country: None (occurrence: None)
  Receive Date: 20081121
  Receipt Date: 20081113
  Transmission Date: 20090506
  Serious: Yes (Hospitalization)
  Sender: FDA-Public Use
  Company Number: US-ABBOTT-08P-163-0488065-00

PATIENT
  Sex: Female
  Weight: 44.492 kg

DRUGS (1)
  1. HUMIRA [Suspect]
     Indication: RHEUMATOID ARTHRITIS
     Dosage: ONCE,  1 IN 2 WEEKS
     Route: 058
     Dates: start: 20081113, end: 20081113

REACTIONS (4)
  - DIZZINESS [None]
  - HALLUCINATION [None]
  - LOSS OF CONSCIOUSNESS [None]
  - NAUSEA [None]
